FAERS Safety Report 4304459-X (Version None)
Quarter: 2004Q1

REPORT INFORMATION
  Report Type: 
  Country: None (occurrence: None)
  Receive Date: 20040225
  Receipt Date: 20040225
  Transmission Date: 20041129
  Serious: Yes (Hospitalization)
  Sender: FDA-Public Use
  Company Number: None

PATIENT
  Age: 42 Year
  Sex: Female
  Weight: 62 kg

DRUGS (4)
  1. CYCLOPHOSPHAMIDE [Suspect]
     Indication: ACUTE LYMPHOCYTIC LEUKAEMIA
     Dosage: 1070 MG EVERY 14 D INTRAVENOUS
     Route: 042
     Dates: start: 20040120, end: 20040219
  2. CYTARABINE [Suspect]
     Indication: ACUTE LYMPHOCYTIC LEUKAEMIA
     Dosage: 124 MG DAILY INTRAVENOUS
     Route: 042
     Dates: start: 20040120, end: 20040213
  3. VANCOMYCIN [Concomitant]
  4. VORICONAZOLE [Concomitant]

REACTIONS (6)
  - BACTERIAL INFECTION [None]
  - FUNGAL INFECTION [None]
  - NEUTROPENIA [None]
  - PANCYTOPENIA [None]
  - PYREXIA [None]
  - SINUSITIS [None]
